FAERS Safety Report 14852868 (Version 1)
Quarter: 2018Q2

REPORT INFORMATION
  Report Type: Spontaneous
  Country: IE (occurrence: IE)
  Receive Date: 20180507
  Receipt Date: 20180507
  Transmission Date: 20180711
  Serious: Yes (Other)
  Sender: FDA-Public Use
  Company Number: IE-ACCORD-066634

PATIENT
  Age: 47 Year
  Sex: Male

DRUGS (2)
  1. MYCOPHENOLIC ACID. [Suspect]
     Active Substance: MYCOPHENOLIC ACID
     Indication: RETROPERITONEAL FIBROSIS
  2. PREDNISOLONE. [Suspect]
     Active Substance: PREDNISOLONE
     Indication: RETROPERITONEAL FIBROSIS
     Dosage: REDUCED DOSE

REACTIONS (5)
  - Rebound effect [Unknown]
  - Disease recurrence [Unknown]
  - Hydronephrosis [Unknown]
  - Retroperitoneal fibrosis [Unknown]
  - Off label use [Unknown]
